FAERS Safety Report 9881652 (Version 1)
Quarter: 2014Q1

REPORT INFORMATION
  Report Type: Report from Study
  Country: CA (occurrence: CA)
  Receive Date: 20140207
  Receipt Date: 20140207
  Transmission Date: 20141002
  Serious: Yes (Hospitalization)
  Sender: FDA-Public Use
  Company Number: CA-JNJFOC-20140202759

PATIENT
  Age: 78 Year
  Sex: Male
  Weight: 58 kg

DRUGS (9)
  1. REMICADE [Suspect]
     Indication: CROHN^S DISEASE
     Route: 042
     Dates: start: 20140118
  2. REMICADE [Suspect]
     Indication: CROHN^S DISEASE
     Route: 042
     Dates: start: 201103
  3. LIPITOR [Concomitant]
     Route: 048
  4. LYRICA [Concomitant]
     Route: 048
  5. EFFEXOR [Concomitant]
     Dosage: 150-75 MG
     Route: 048
  6. SEROQUEL [Concomitant]
     Route: 048
  7. ATIVAN [Concomitant]
     Route: 048
  8. NEXIUM [Concomitant]
     Route: 048
  9. SODIUM PHOSPHATE [Concomitant]
     Route: 048

REACTIONS (3)
  - Dyspnoea [Recovered/Resolved]
  - Chest pain [Recovered/Resolved]
  - Clostridium difficile infection [Recovered/Resolved]
